FAERS Safety Report 5829990-7 (Version None)
Quarter: 2008Q3

REPORT INFORMATION
  Report Type: 
  Country: None (occurrence: None)
  Receive Date: 20080801
  Receipt Date: 20080723
  Transmission Date: 20090109
  Serious: Yes (Other)
  Sender: FDA-Public Use
  Company Number: BR-ABBOTT-08P-020-0466170-00

PATIENT
  Sex: Male
  Weight: 80 kg

DRUGS (4)
  1. DEPAKENE [Suspect]
     Indication: CONVULSION
     Route: 048
     Dates: start: 20080717
  2. DEPAKENE [Suspect]
     Dates: start: 20050101
  3. CLONAZEPAM [Concomitant]
     Indication: INSOMNIA
     Route: 048
     Dates: start: 20050101
  4. PERICIAZINE [Concomitant]
     Indication: INSOMNIA
     Route: 048
     Dates: start: 20050101

REACTIONS (2)
  - CONVULSION [None]
  - DRUG INEFFECTIVE [None]
